FAERS Safety Report 18194836 (Version 2)
Quarter: 2020Q3

REPORT INFORMATION
  Report Type: Spontaneous
  Country: ES (occurrence: ES)
  Receive Date: 20200825
  Receipt Date: 20200907
  Transmission Date: 20201103
  Serious: Yes (Other)
  Sender: FDA-Public Use
  Company Number: NVSC2020ES234411

PATIENT
  Age: 53 Year
  Sex: Male

DRUGS (1)
  1. IMATINIB MESILATE [Suspect]
     Active Substance: IMATINIB MESYLATE
     Indication: GASTROINTESTINAL CARCINOMA
     Dosage: 400 MG, QD
     Route: 065

REACTIONS (6)
  - Erythema [Recovered/Resolved]
  - Skin ulcer [Recovered/Resolved]
  - Necrotising panniculitis [Recovered/Resolved]
  - Skin plaque [Recovered/Resolved]
  - Skin lesion [Recovered/Resolved]
  - Skin swelling [Recovered/Resolved]
